FAERS Safety Report 6717594-3 (Version None)
Quarter: 2010Q2

REPORT INFORMATION
  Report Type: 
  Country: None (occurrence: None)
  Receive Date: 20100505
  Receipt Date: 20100419
  Transmission Date: 20101027
  Serious: Yes (Other)
  Sender: FDA-Public Use
  Company Number: WAES 1004USA03430

PATIENT
  Age: 57 Year
  Sex: Male
  Weight: 83.0083 kg

DRUGS (22)
  1. CAP VORINOSTAT UNK [Suspect]
     Dosage: 200 MG/BID/PO
     Route: 048
     Dates: start: 20100414, end: 20100418
  2. ACTIGALL [Concomitant]
  3. AMBIEN [Concomitant]
  4. ARTIFICIAL TEARS [Concomitant]
  5. ATIVAN [Concomitant]
  6. BENADRYL [Concomitant]
  7. BENADRYL INJECTION [Concomitant]
  8. COMPAZINE [Concomitant]
  9. HYDROCERIN CREAM [Concomitant]
  10. KEPPRA [Concomitant]
  11. KYTRIL [Concomitant]
  12. OCEAN [Concomitant]
  13. PROGRAF [Concomitant]
  14. PROTONIX [Concomitant]
  15. RESTASIS [Concomitant]
  16. TYLENOL-500 [Concomitant]
  17. ALLOPURINOL [Concomitant]
  18. FLUDARABINE PHOSPHATE [Concomitant]
  19. MAGNESIA [MILK OF] [Concomitant]
  20. MICAFUNGIN [Concomitant]
  21. OXYCODONE [Concomitant]
  22. SODIUM BICARBONATE (+) SODIIUM CH [Concomitant]

REACTIONS (6)
  - AORTIC DILATATION [None]
  - AORTIC DISSECTION [None]
  - BRADYCARDIA [None]
  - HEPATIC ARTERY OCCLUSION [None]
  - HYPERTENSION [None]
  - OXYGEN SATURATION DECREASED [None]
